FAERS Safety Report 7927000-9 (Version None)
Quarter: 2011Q4

REPORT INFORMATION
  Report Type: 
  Country: None (occurrence: None)
  Receive Date: 20111116
  Receipt Date: 20111111
  Transmission Date: 20120403
  Serious: Yes (Other)
  Sender: FDA-Public Use
  Company Number: GER/GER/11/0021492

PATIENT
  Age: 23 Year
  Sex: Female
  Weight: 68 kg

DRUGS (6)
  1. FALITHROM (PHENPROCOUMON) [Suspect]
     Indication: PULMONARY EMBOLISM
     Dosage: ORAL
     Route: 048
     Dates: start: 20091031, end: 20110113
  2. ENOXAPARIN SODIUM [Concomitant]
  3. PREDNISOLONE [Concomitant]
  4. TORSEMIDE [Suspect]
     Indication: GLOMERULONEPHRITIS MEMBRANOUS
     Dosage: 10 MG, ORAL
     Route: 048
     Dates: start: 20101031, end: 20110126
  5. CYCLOSPORINE [Suspect]
     Indication: GLOMERULONEPHRITIS MEMBRANOUS
     Dosage: 150 MG, 2 IN 1 D, ORAL
     Route: 048
     Dates: start: 20091031, end: 20110131
  6. RAMIPRIL [Suspect]
     Indication: GLOMERULONEPHRITIS MEMBRANOUS
     Dosage: 5 MG, ORAL
     Route: 048
     Dates: start: 20101031, end: 20110126

REACTIONS (5)
  - MATERNAL EXPOSURE DURING PREGNANCY [None]
  - PULMONARY EMBOLISM [None]
  - PREGNANCY [None]
  - ABORTION INDUCED [None]
  - DEEP VEIN THROMBOSIS [None]
